FAERS Safety Report 20216212 (Version 1)
Quarter: 2021Q4

REPORT INFORMATION
  Report Type: Other
  Country: US (occurrence: US)
  Receive Date: 20211222
  Receipt Date: 20211222
  Transmission Date: 20220303
  Serious: Yes (Hospitalization, Other)
  Sender: FDA-Public Use
  Company Number: US-HLS-202105695

PATIENT
  Age: 67 Year
  Sex: Male

DRUGS (1)
  1. CLOZAPINE [Suspect]
     Active Substance: CLOZAPINE
     Dosage: 12.5MG OF CLOZAPINE WAS INITIATED, THEN 50MG (12.5MG IN THE MORNING AND 37.5MG AT NIGHT AND THEN 100
     Route: 065

REACTIONS (8)
  - Cardiomegaly [Recovering/Resolving]
  - C-reactive protein increased [Recovering/Resolving]
  - Lung infiltration [Recovering/Resolving]
  - Dyspnoea [Recovering/Resolving]
  - Myocarditis [Recovering/Resolving]
  - Cardiac failure [Recovering/Resolving]
  - Troponin increased [Recovering/Resolving]
  - Oedema peripheral [Recovering/Resolving]
